FAERS Safety Report 18842284 (Version 1)
Quarter: 2021Q1

REPORT INFORMATION
  Report Type: Spontaneous
  Country: CH (occurrence: CH)
  Receive Date: 20210204
  Receipt Date: 20210204
  Transmission Date: 20210419
  Serious: Yes (Other)
  Sender: FDA-Public Use
  Company Number: CH-LUPIN PHARMACEUTICALS INC.-2021-00990

PATIENT
  Age: 50 Year
  Sex: Female

DRUGS (8)
  1. BELIMUMAB [Suspect]
     Active Substance: BELIMUMAB
     Indication: CALCINOSIS
     Dosage: UNK
     Route: 065
  2. BARICITINIB. [Concomitant]
     Active Substance: BARICITINIB
     Dosage: 4 MILLIGRAM, QD
     Route: 065
  3. CYCLOPHOSPHAMIDE. [Suspect]
     Active Substance: CYCLOPHOSPHAMIDE
     Indication: CALCINOSIS
     Dosage: UNK
     Route: 065
  4. COLCHICINE. [Suspect]
     Active Substance: COLCHICINE
     Indication: CALCINOSIS
     Dosage: UNK
     Route: 065
  5. DILTIAZEM. [Suspect]
     Active Substance: DILTIAZEM
     Indication: CALCINOSIS
     Dosage: UNK
     Route: 065
  6. IBANDRONATE [Suspect]
     Active Substance: IBANDRONATE SODIUM
     Indication: CALCINOSIS
     Dosage: UNK
     Route: 065
  7. HYDROXYCHLOROQUINE [Suspect]
     Active Substance: HYDROXYCHLOROQUINE
     Indication: CALCINOSIS
     Dosage: UNK
     Route: 065
  8. BARICITINIB. [Concomitant]
     Active Substance: BARICITINIB
     Indication: CALCINOSIS
     Dosage: 2 MILLIGRAM, QD
     Route: 065

REACTIONS (1)
  - Drug ineffective [Unknown]
